FAERS Safety Report 9950609 (Version 1)
Quarter: 2014Q1

REPORT INFORMATION
  Report Type: Report from Study
  Country: US (occurrence: US)
  Receive Date: 20140304
  Receipt Date: 20140304
  Transmission Date: 20141002
  Serious: No
  Sender: FDA-Public Use
  Company Number: US-ABBVIE-13P-163-1068582-00

PATIENT
  Age: 57 Year
  Sex: Female

DRUGS (5)
  1. HUMIRA [Suspect]
     Indication: PSORIASIS
     Dates: start: 20130319
  2. MVI [Concomitant]
     Indication: PRODUCT USED FOR UNKNOWN INDICATION
     Dosage: DAILY
  3. ALEVE [Concomitant]
     Indication: ARTHRALGIA
  4. MOTRIN [Concomitant]
     Indication: ARTHRALGIA
  5. TRAMADOL [Concomitant]
     Indication: ARTHRALGIA
     Dosage: AS NEEDED

REACTIONS (1)
  - Pruritus [Not Recovered/Not Resolved]
